FAERS Safety Report 8029740-2 (Version None)
Quarter: 2012Q1

REPORT INFORMATION
  Report Type: 
  Country: None (occurrence: None)
  Receive Date: 20120109
  Receipt Date: 20111230
  Transmission Date: 20120608
  Serious: Yes (Hospitalization)
  Sender: FDA-Public Use
  Company Number: US-BAYER-2011-063848

PATIENT
  Age: 21 Year
  Sex: Female
  Weight: 79.819 kg

DRUGS (7)
  1. YAZ [Suspect]
     Indication: CONTRACEPTION
     Dosage: UNK
     Route: 048
     Dates: start: 20090101, end: 20100601
  2. NAPROXEN (ALEVE) [Concomitant]
  3. FLUCONAZOLE [Concomitant]
  4. DICYCLOMINE [Concomitant]
  5. IBUPROFEN (ADVIL) [Concomitant]
  6. CLINDAMYCIN [Concomitant]
  7. SULFAMETHOXAZOLE [Concomitant]

REACTIONS (2)
  - BILIARY COLIC [None]
  - CHOLECYSTITIS CHRONIC [None]
